FAERS Safety Report 8806354 (Version 1)
Quarter: 2012Q4

REPORT INFORMATION
  Report Type: 
  Country: US (occurrence: US)
  Receive Date: 20120925
  Receipt Date: 20120925
  Transmission Date: 20130627
  Serious: No
  Sender: FDA-Public Use
  Company Number: US-BAYER-2012-098871

PATIENT
  Sex: Female

DRUGS (1)
  1. MIRENA [Suspect]

REACTIONS (1)
  - Pregnancy with contraceptive device [None]
